FAERS Safety Report 6856312-5 (Version None)
Quarter: 2010Q3

REPORT INFORMATION
  Report Type: 
  Country: None (occurrence: None)
  Receive Date: 20100719
  Receipt Date: 20100708
  Transmission Date: 20110219
  Serious: Yes (Hospitalization)
  Sender: FDA-Public Use
  Company Number: US-JNJFOC-20100703447

PATIENT
  Sex: Female
  Weight: 89.8 kg

DRUGS (11)
  1. GOLIMUMAB [Suspect]
     Indication: RHEUMATOID ARTHRITIS
     Route: 058
  2. GOLIMUMAB [Suspect]
     Route: 058
  3. FOLIC ACID [Concomitant]
     Route: 048
  4. CALTRATE [Concomitant]
     Route: 048
  5. FIBERCON [Concomitant]
     Route: 048
  6. ACETAMINOPHEN [Concomitant]
     Route: 048
  7. CELEBREX [Concomitant]
     Route: 048
  8. METHOTREXATE [Concomitant]
     Route: 048
  9. METFORMIN [Concomitant]
     Route: 048
  10. LUMIGAN [Concomitant]
     Route: 047
  11. LANTUS [Concomitant]
     Route: 058

REACTIONS (2)
  - DEHYDRATION [None]
  - URINARY TRACT INFECTION [None]
